FAERS Safety Report 5044268-X (Version None)
Quarter: 2006Q2

REPORT INFORMATION
  Report Type: 
  Country: None (occurrence: None)
  Receive Date: 20060601
  Receipt Date: 20060330
  Transmission Date: 20061013
  Serious: No
  Sender: FDA-Public Use
  Company Number: US200603007291

PATIENT
  Age: 52 Year
  Sex: Male

DRUGS (2)
  1. CYMBALTA [Suspect]
     Indication: NEUROPATHY
     Dosage: 60 MG, DAILY (1/D)
     Dates: start: 20060101
  2. NEURONTIN [Concomitant]

REACTIONS (1)
  - NECK PAIN [None]
